FAERS Safety Report 5960218-3 (Version None)
Quarter: 2008Q4

REPORT INFORMATION
  Report Type: 
  Country: None (occurrence: None)
  Receive Date: 20081120
  Receipt Date: 20081113
  Transmission Date: 20090506
  Serious: Yes (Life-Threatening, Hospitalization, Other)
  Sender: FDA-Public Use
  Company Number: DE-ELI_LILLY_AND_COMPANY-DE200810005071

PATIENT
  Sex: Female

DRUGS (6)
  1. BYETTA [Suspect]
     Indication: INSULIN RESISTANCE
     Dosage: 10 UG, 2/D
     Route: 058
     Dates: start: 20081002, end: 20081006
  2. ITRACONAZOLE [Concomitant]
     Dosage: UNK, DAILY (1/D)
     Route: 048
  3. LOVASTATIN [Concomitant]
     Dosage: UNK, DAILY (1/D)
     Route: 048
  4. FURORESE [Concomitant]
     Dosage: UNK, DAILY (1/D)
     Route: 048
  5. NEXIUM [Concomitant]
     Dosage: UNK, DAILY (1/D)
     Route: 048
  6. HALDOL [Concomitant]
     Dosage: UNK, UNKNOWN
     Route: 042
     Dates: start: 20080101

REACTIONS (5)
  - BLOOD GLUCOSE INCREASED [None]
  - CHOLELITHIASIS [None]
  - HYPONATRAEMIA [None]
  - LIPASE INCREASED [None]
  - METABOLIC ACIDOSIS [None]
